FAERS Safety Report 7005396-2 (Version None)
Quarter: 2010Q3

REPORT INFORMATION
  Report Type: 
  Country: None (occurrence: None)
  Receive Date: 20100921
  Receipt Date: 20100823
  Transmission Date: 20110219
  Serious: No
  Sender: FDA-Public Use
  Company Number: US-US-EMD SERONO, INC.-7015355

PATIENT
  Sex: Male

DRUGS (6)
  1. REBIF [Suspect]
     Indication: MULTIPLE SCLEROSIS
     Route: 058
     Dates: start: 20090107
  2. LEXAPRO [Concomitant]
     Indication: MEMORY IMPAIRMENT
  3. MADAFONIL [Concomitant]
     Indication: MEMORY IMPAIRMENT
  4. MADAFONIL [Concomitant]
     Indication: FATIGUE
  5. KLONOPIN [Concomitant]
     Indication: SLEEP DISORDER
  6. NUVIGIL [Concomitant]

REACTIONS (1)
  - DIZZINESS [None]
